FAERS Safety Report 24682603 (Version 2)
Quarter: 2025Q4

REPORT INFORMATION
  Report Type: Spontaneous
  Country: US (occurrence: US)
  Receive Date: 20241130
  Receipt Date: 20251215
  Transmission Date: 20260118
  Serious: No
  Sender: ROCHE
  Company Number: US-ROCHE-10000144180

PATIENT
  Sex: Female

DRUGS (4)
  1. XOLAIR PFS [Suspect]
     Active Substance: OMALIZUMAB
     Indication: Urticaria
     Dosage: STRENGTH- 150MG/ML
     Route: 058
     Dates: start: 202410
  2. XOLAIR PFS [Suspect]
     Active Substance: OMALIZUMAB
  3. FAMOTIDINE [Concomitant]
     Active Substance: FAMOTIDINE
  4. DUPIXENT [Concomitant]
     Active Substance: DUPILUMAB

REACTIONS (1)
  - Urticaria [Unknown]
